FAERS Safety Report 10691946 (Version 1)
Quarter: 2015Q1

REPORT INFORMATION
  Report Type: Spontaneous
  Country: US (occurrence: US)
  Receive Date: 20150105
  Receipt Date: 20150105
  Transmission Date: 20150720
  Serious: Yes (Other)
  Sender: FDA-Public Use
  Company Number: PHHY2014US169762

PATIENT
  Sex: Male

DRUGS (1)
  1. IMIQUIMOD. [Suspect]
     Active Substance: IMIQUIMOD
     Indication: ANOGENITAL WARTS
     Dosage: 5 %, 3 TIMES WEEKLY AT NIGHT
     Route: 061

REACTIONS (9)
  - Genital erythema [Recovered/Resolved]
  - Tenderness [Recovered/Resolved]
  - Scrotal oedema [Recovered/Resolved]
  - Genital pain [Recovered/Resolved]
  - Penis disorder [Recovered/Resolved]
  - Penile oedema [Recovered/Resolved]
  - Gait disturbance [Unknown]
  - Genital swelling [Recovered/Resolved]
  - Staphylococcal infection [Unknown]
